FAERS Safety Report 10510019 (Version 3)
Quarter: 2015Q1

REPORT INFORMATION
  Report Type: Spontaneous
  Country: US (occurrence: US)
  Receive Date: 20141010
  Receipt Date: 20150113
  Transmission Date: 20150720
  Serious: Yes (Hospitalization, Other)
  Sender: FDA-Public Use
  Company Number: US-AMGEN-USASP2014076709

PATIENT
  Age: 53 Year
  Sex: Female

DRUGS (5)
  1. PREDNISONE. [Concomitant]
     Active Substance: PREDNISONE
     Dosage: 5 MG, TWO TIMES EVERY DAY
     Route: 048
     Dates: start: 20141009
  2. TYLENOL EXTRA STRENGTH [Concomitant]
     Active Substance: ACETAMINOPHEN
     Dosage: 500 MG, 1 TABLET AS NECESSARY
     Route: 048
  3. CLONAZEPAM. [Concomitant]
     Active Substance: CLONAZEPAM
     Dosage: 0.5 MG, UNK
  4. VOLTAREN [Concomitant]
     Active Substance: DICLOFENAC SODIUM
     Dosage: 1 % TOPICAL GEL FOUR TIMES EVERY DAY TO THE AFFECTED AREA
     Route: 061
     Dates: start: 20131204
  5. ENBREL [Suspect]
     Active Substance: ETANERCEPT
     Indication: RHEUMATOID ARTHRITIS
     Dosage: 50 MG, QWK
     Route: 058
     Dates: start: 20130227

REACTIONS (11)
  - Urticaria [Recovered/Resolved]
  - Skin ulcer [Not Recovered/Not Resolved]
  - Peripheral swelling [Not Recovered/Not Resolved]
  - Rash pruritic [Recovered/Resolved]
  - Abdominal pain [Recovering/Resolving]
  - Condition aggravated [Not Recovered/Not Resolved]
  - Rash erythematous [Recovered/Resolved]
  - Purpura [Recovering/Resolving]
  - Pruritus [Unknown]
  - Scab [Not Recovered/Not Resolved]
  - Haematochezia [Recovering/Resolving]

NARRATIVE: CASE EVENT DATE: 20140927
